FAERS Safety Report 4522471-2 (Version None)
Quarter: 2004Q4

REPORT INFORMATION
  Report Type: 
  Country: None (occurrence: None)
  Receive Date: 20041207
  Receipt Date: 20041117
  Transmission Date: 20050328
  Serious: Yes (Hospitalization)
  Sender: FDA-Public Use
  Company Number: USA040977655

PATIENT
  Age: 76 Year
  Sex: Female
  Weight: 84 kg

DRUGS (6)
  1. FORTEO [Suspect]
     Indication: BONE DISORDER
     Dosage: 20 UG/ 1 DAY
     Dates: start: 20040809
  2. ATROVENT [Concomitant]
  3. PREDNISONE [Concomitant]
  4. CELLCEPT [Concomitant]
  5. VITAMIN D [Concomitant]
  6. CALCIUM [Concomitant]

REACTIONS (8)
  - FEELING ABNORMAL [None]
  - INFECTION [None]
  - INJECTION SITE REACTION [None]
  - PHARMACEUTICAL PRODUCT COMPLAINT [None]
  - PYREXIA [None]
  - RASH MACULO-PAPULAR [None]
  - SWELLING [None]
  - WHITE BLOOD CELL COUNT INCREASED [None]
